FAERS Safety Report 5555348-4 (Version None)
Quarter: 2007Q4

REPORT INFORMATION
  Report Type: 
  Country: None (occurrence: None)
  Receive Date: 20071213
  Receipt Date: 20070816
  Transmission Date: 20080405
  Serious: No
  Sender: FDA-Public Use
  Company Number: US-AMGEN-KDL237645

PATIENT
  Sex: Female

DRUGS (1)
  1. ENBREL [Suspect]
     Indication: RHEUMATOID ARTHRITIS
     Route: 058
     Dates: start: 20070716

REACTIONS (8)
  - ABDOMINAL PAIN [None]
  - ARRHYTHMIA [None]
  - DIARRHOEA [None]
  - FOOD POISONING [None]
  - PULMONARY OEDEMA [None]
  - RENAL CYST [None]
  - VOMITING [None]
  - WHITE BLOOD CELL COUNT INCREASED [None]
